FAERS Safety Report 8800046 (Version 2)
Quarter: 2015Q2

REPORT INFORMATION
  Report Type: Report from Study
  Country: US (occurrence: US)
  Receive Date: 20120921
  Receipt Date: 20150623
  Transmission Date: 20150821
  Serious: Yes (Death)
  Sender: FDA-Public Use
  Company Number: US-ROCHE-1123293

PATIENT
  Sex: Male

DRUGS (11)
  1. PERCOCET [Concomitant]
     Active Substance: ACETAMINOPHEN\OXYCODONE HYDROCHLORIDE
  2. MEGACE [Concomitant]
     Active Substance: MEGESTROL ACETATE
  3. LEXAPRO [Concomitant]
     Active Substance: ESCITALOPRAM OXALATE
     Route: 065
  4. AVASTIN [Suspect]
     Active Substance: BEVACIZUMAB
     Indication: RENAL CANCER
     Route: 042
  5. LEXAPRO [Concomitant]
     Active Substance: ESCITALOPRAM OXALATE
     Route: 065
  6. DURAGESIC [Concomitant]
     Active Substance: FENTANYL
     Route: 065
  7. COUMADIN [Concomitant]
     Active Substance: WARFARIN SODIUM
  8. AVASTIN [Suspect]
     Active Substance: BEVACIZUMAB
     Route: 042
  9. ARANESP [Concomitant]
     Active Substance: DARBEPOETIN ALFA
     Route: 042
  10. ARANESP [Concomitant]
     Active Substance: DARBEPOETIN ALFA
     Route: 042
  11. OXYTOCINE [Concomitant]
     Dosage: PRN
     Route: 065

REACTIONS (19)
  - Decreased appetite [Unknown]
  - Fatigue [Unknown]
  - Hypoaesthesia [Unknown]
  - Depression [Unknown]
  - Constipation [Unknown]
  - Weight fluctuation [Unknown]
  - Death [Fatal]
  - Cough [Unknown]
  - Paraesthesia [Unknown]
  - Pain [Unknown]
  - Dysgeusia [Unknown]
  - Sexual dysfunction [Unknown]
  - Hyperhidrosis [Unknown]
  - Off label use [Unknown]
  - Dyspnoea [Unknown]
  - Diarrhoea [Unknown]
  - Asthenia [Unknown]
  - Somnolence [Unknown]
  - Dry mouth [Unknown]
